FAERS Safety Report 8845804 (Version 1)
Quarter: 2012Q4

REPORT INFORMATION
  Report Type: 
  Country: US (occurrence: US)
  Receive Date: 20121017
  Receipt Date: 20121017
  Transmission Date: 20130627
  Serious: No
  Sender: FDA-Public Use
  Company Number: US-BAYER-2012-107905

PATIENT
  Age: 59 Year
  Sex: Female
  Weight: 82 kg

DRUGS (11)
  1. ALEVE LIQUID GELS [Suspect]
     Indication: ARTHRITIS
     Dosage: 2 DF, PRN
     Route: 048
  2. ALEVE CAPLET/TABLET,MIDOL EXTENDED RELIEF CAPLET [Suspect]
     Indication: ARTHRITIS
     Dosage: 2 UNK, UNK
     Route: 048
  3. SYNTHROID [Concomitant]
  4. ZETIA [Concomitant]
  5. FERROUS SULFATE [Concomitant]
  6. METFORMIN [Concomitant]
  7. PRILOSEC [Concomitant]
  8. LORATADINE [Concomitant]
  9. ECOTRIN [Concomitant]
     Dosage: 81 mg, UNK
  10. LISINOPRIL [Concomitant]
  11. PRESCRIPTION ECZEMA CREAM [Concomitant]

REACTIONS (1)
  - Drug screen positive [Not Recovered/Not Resolved]
